FAERS Safety Report 8623280-5 (Version None)
Quarter: 2012Q3

REPORT INFORMATION
  Report Type: 
  Country: None (occurrence: None)
  Receive Date: 20120824
  Receipt Date: 20120824
  Transmission Date: 20120928
  Serious: Yes (Other)
  Sender: FDA-Public Use
  Company Number: None

PATIENT
  Age: 25 Year
  Sex: Female
  Weight: 58.9676 kg

DRUGS (3)
  1. ADDERALL ER CAPSULES [Concomitant]
  2. SYNTHROID [Concomitant]
  3. VENLAFAXINE HYDROCHLORIDE [Suspect]
     Indication: MAJOR DEPRESSION
     Dosage: 2 CAPSULES PO QAM
     Route: 048
     Dates: start: 20120305, end: 20120513

REACTIONS (1)
  - NIGHT SWEATS [None]
